FAERS Safety Report 8254636-0 (Version None)
Quarter: 2012Q1

REPORT INFORMATION
  Report Type: 
  Country: None (occurrence: None)
  Receive Date: 20120329
  Receipt Date: 20110411
  Transmission Date: 20120608
  Serious: No
  Sender: FDA-Public Use
  Company Number: 2011P1005925

PATIENT
  Age: 61 Year
  Sex: Male
  Weight: 86.637 kg

DRUGS (2)
  1. INHALERS [Concomitant]
  2. NYSTATIN [Suspect]
     Indication: ACCIDENTAL EXPOSURE
     Dosage: X1; IO
     Dates: start: 20110411, end: 20110411

REACTIONS (5)
  - ACCIDENTAL EXPOSURE [None]
  - EAR PAIN [None]
  - OCULAR HYPERAEMIA [None]
  - SINUSITIS [None]
  - CONJUNCTIVITIS INFECTIVE [None]
